FAERS Safety Report 23094715 (Version 1)
Quarter: 2023Q4

REPORT INFORMATION
  Report Type: Spontaneous
  Country: US (occurrence: US)
  Receive Date: 20231023
  Receipt Date: 20231023
  Transmission Date: 20240109
  Serious: No
  Sender: FDA-Public Use
  Company Number: US-ELI_LILLY_AND_COMPANY-US202306004148

PATIENT
  Age: 32 Year
  Sex: Female

DRUGS (2)
  1. MOUNJARO [Suspect]
     Active Substance: TIRZEPATIDE
     Indication: Idiopathic intracranial hypertension
     Dosage: UNK UNK, UNKNOWN
     Route: 058
     Dates: start: 202303
  2. MOUNJARO [Suspect]
     Active Substance: TIRZEPATIDE
     Indication: Idiopathic intracranial hypertension
     Dosage: 15 MG, UNKNOWN
     Route: 058

REACTIONS (3)
  - Off label use [Unknown]
  - Incorrect dose administered [Unknown]
  - Injection site mass [Unknown]

NARRATIVE: CASE EVENT DATE: 20230301
